FAERS Safety Report 8372564-7 (Version None)
Quarter: 2012Q2

REPORT INFORMATION
  Report Type: 
  Country: None (occurrence: None)
  Receive Date: 20120521
  Receipt Date: 20120515
  Transmission Date: 20120825
  Serious: Yes (Other)
  Sender: FDA-Public Use
  Company Number: PHEH2012US010232

PATIENT
  Sex: Female

DRUGS (11)
  1. CARISOPRODOL [Concomitant]
  2. LYRICA [Concomitant]
  3. DIOVAN [Suspect]
     Indication: RENAL DISORDER
     Dosage: 160 MG, ONCE PER DAY
  4. PRISTIQ [Concomitant]
  5. METHOTREXATE [Concomitant]
  6. PLAVIX [Concomitant]
  7. ORENCIA [Concomitant]
  8. HUMALOG [Concomitant]
  9. CRESTOR [Concomitant]
  10. TEMAZEPAM [Concomitant]
  11. SYNTHROID [Concomitant]

REACTIONS (1)
  - ANKLE FRACTURE [None]
